FAERS Safety Report 16761120 (Version 1)
Quarter: 2019Q3

REPORT INFORMATION
  Report Type: Spontaneous
  Country: US (occurrence: US)
  Receive Date: 20190830
  Receipt Date: 20190830
  Transmission Date: 20191005
  Serious: No
  Sender: FDA-Public Use
  Company Number: US-ANIPHARMA-2018-US-021297

PATIENT
  Sex: Female

DRUGS (2)
  1. IBRANCE [Suspect]
     Active Substance: PALBOCICLIB
     Dosage: 100 MG AMBER/TAN COLORED CAPSULE 21 DAYS ON AND 7 DAYS OFF
     Dates: start: 201709
  2. ANASTROZOLE. [Suspect]
     Active Substance: ANASTROZOLE
     Indication: PRODUCT USED FOR UNKNOWN INDICATION
     Dosage: 1 MG ONE TABLET ONCE EVERY DAY; ONE TABLET AT LEAST ONCE A WEEK

REACTIONS (6)
  - Swelling [Unknown]
  - Rash [Unknown]
  - Off label use [Recovered/Resolved]
  - Neuralgia [Unknown]
  - Peripheral swelling [Not Recovered/Not Resolved]
  - Pain [Unknown]
